FAERS Safety Report 5909556-0 (Version None)
Quarter: 2008Q4

REPORT INFORMATION
  Report Type: 
  Country: None (occurrence: None)
  Receive Date: 20081002
  Receipt Date: 20080925
  Transmission Date: 20090506
  Serious: Yes (Hospitalization)
  Sender: FDA-Public Use
  Company Number: WAES 0809USA04552

PATIENT
  Age: 56 Year
  Sex: Male

DRUGS (6)
  1. ZOCOR [Suspect]
     Dosage: PO
     Route: 048
     Dates: start: 20080101
  2. ENBREL [Suspect]
     Indication: PSORIASIS
     Dosage: 50 MG/DAILY/SC
     Route: 058
     Dates: start: 20080201, end: 20080711
  3. CAP SPALT LIQUA UNK [Suspect]
     Dates: start: 20080101
  4. CLONISTADA [Concomitant]
  5. MICARDIS [Concomitant]
  6. TRIAMPUR COMPOSITIUM [Concomitant]

REACTIONS (1)
  - HEPATITIS TOXIC [None]
